FAERS Safety Report 10710925 (Version 4)
Quarter: 2015Q1

REPORT INFORMATION
  Report Type: Spontaneous
  Country: US (occurrence: US)
  Receive Date: 20150114
  Receipt Date: 20150309
  Transmission Date: 20150721
  Serious: Yes (Hospitalization)
  Sender: FDA-Public Use
  Company Number: US-UNITED THERAPEUTICS-UNT-2014-009882

PATIENT
  Age: 36 Year
  Sex: Female
  Weight: 58.96 kg

DRUGS (4)
  1. REMODULIN [Suspect]
     Active Substance: TREPROSTINIL
     Dosage: 0.076 ?G/KG, CONTINUING
     Route: 041
     Dates: start: 20140628
  2. REVATIO [Concomitant]
     Active Substance: SILDENAFIL CITRATE
     Indication: PRODUCT USED FOR UNKNOWN INDICATION
  3. REMODULIN [Suspect]
     Active Substance: TREPROSTINIL
     Indication: PULMONARY ARTERIAL HYPERTENSION
     Dosage: 0.061 ?G/KG, CONTINUING
     Route: 041
     Dates: start: 20140628
  4. REMODULIN [Suspect]
     Active Substance: TREPROSTINIL
     Dosage: 0.071 ?G/KG, CONTINUING
     Route: 041
     Dates: start: 20140628

REACTIONS (3)
  - Sickle cell anaemia [Unknown]
  - Pulmonary arterial hypertension [Unknown]
  - Pneumonia [Unknown]

NARRATIVE: CASE EVENT DATE: 20141002
